FAERS Safety Report 20670594 (Version 1)
Quarter: 2022Q2

REPORT INFORMATION
  Report Type: Spontaneous
  Country: US (occurrence: None)
  Receive Date: 20220401
  Receipt Date: 20220401
  Transmission Date: 20220721
  Serious: Yes (Hospitalization)
  Sender: FDA-Public Use
  Company Number: None

PATIENT
  Age: 89 Year
  Sex: Male
  Weight: 93.44 kg

DRUGS (18)
  1. MEKINIST [Suspect]
     Active Substance: TRAMETINIB DIMETHYL SULFOXIDE
     Indication: Malignant melanoma
     Dosage: OTHER STRENGTH : 0.5;?FREQUENCY : DAILY;?
     Route: 048
     Dates: start: 202111
  2. TAFINLAR [Suspect]
     Active Substance: DABRAFENIB MESYLATE
     Indication: Malignant melanoma
     Dosage: FREQUENCY : TWICE A DAY;?
     Route: 048
     Dates: start: 202111
  3. ASPIRIN [Concomitant]
     Active Substance: ASPIRIN
  4. B COMPLEX VITAMIN [Concomitant]
  5. BD ULTRAFINE NANO PEN NEEDLE [Concomitant]
  6. CETIRIZINE HYDROCHLORIDE [Concomitant]
     Active Substance: CETIRIZINE HYDROCHLORIDE
  7. Coreg Oral [Concomitant]
  8. FISH OIL [Concomitant]
     Active Substance: FISH OIL
  9. DYAZIDE [Concomitant]
     Active Substance: HYDROCHLOROTHIAZIDE\TRIAMTERENE
  10. GABAPENTIN [Concomitant]
     Active Substance: GABAPENTIN
  11. Glucose Blood [Concomitant]
  12. KENALOG [Concomitant]
     Active Substance: TRIAMCINOLONE ACETONIDE
  13. Lancets  Miscellaneous [Concomitant]
  14. Lantus SoloStar Subcutaneous [Concomitant]
  15. VITAMINS [Concomitant]
     Active Substance: VITAMINS
  16. PROTONIX [Concomitant]
     Active Substance: PANTOPRAZOLE SODIUM
  17. VITAMIN C [Concomitant]
     Active Substance: ASCORBIC ACID
  18. zocor oral [Concomitant]

REACTIONS (1)
  - Blood glucose increased [None]
